FAERS Safety Report 4947887-1 (Version None)
Quarter: 2006Q1

REPORT INFORMATION
  Report Type: 
  Country: None (occurrence: None)
  Receive Date: 20060320
  Receipt Date: 20060313
  Transmission Date: 20060701
  Serious: Yes (Hospitalization)
  Sender: FDA-Public Use
  Company Number: US-BRISTOL-MYERS SQUIBB COMPANY-13313861

PATIENT
  Age: 46 Year
  Sex: Male

DRUGS (10)
  1. CYTOXAN [Suspect]
     Indication: HODGKIN'S DISEASE
     Dates: start: 20060122, end: 20060213
  2. VINCRISTINE SULFATE [Suspect]
     Indication: HODGKIN'S DISEASE
     Dates: start: 20060122, end: 20060213
  3. POSACONAZOLE [Suspect]
     Indication: FUNGAL INFECTION
     Route: 048
     Dates: start: 20060131
  4. DAPSONE [Concomitant]
     Dates: start: 20050101
  5. COLACE [Concomitant]
     Dates: start: 20050101
  6. OXYCONTIN [Concomitant]
     Route: 054
     Dates: start: 20050101
  7. POTASSIUM CHLORIDE [Concomitant]
     Dates: start: 20060101
  8. MAGNESIUM OXIDE [Concomitant]
     Dates: start: 20060201
  9. AMITRIPTYLINE HCL [Concomitant]
     Dates: start: 20060201
  10. LORAZEPAM [Concomitant]
     Dates: start: 20060201

REACTIONS (5)
  - COUGH [None]
  - DIARRHOEA [None]
  - FEBRILE NEUTROPENIA [None]
  - NASAL CONGESTION [None]
  - VOMITING [None]
